FAERS Safety Report 6749754-X (Version None)
Quarter: 2010Q2

REPORT INFORMATION
  Report Type: 
  Country: None (occurrence: None)
  Receive Date: 20100527
  Receipt Date: 20100527
  Transmission Date: 20101027
  Serious: No
  Sender: FDA-Public Use
  Company Number: None

PATIENT
  Sex: Female
  Weight: 64.4108 kg

DRUGS (2)
  1. LIPITOR [Suspect]
     Indication: CAROTID ARTERIOSCLEROSIS
     Dosage: 20MG TAB/DAY 1 PER DAY ORAL
     Route: 048
     Dates: start: 20100317, end: 20100415
  2. ZOCOR [Suspect]
     Indication: CAROTID ARTERIOSCLEROSIS
     Dosage: 20MG 1 PER DAY ORAL
     Route: 048
     Dates: start: 20100505, end: 20100507

REACTIONS (4)
  - ARTHRALGIA [None]
  - BACK PAIN [None]
  - MYALGIA [None]
  - PAIN IN EXTREMITY [None]
